FAERS Safety Report 24574691 (Version 1)
Quarter: 2024Q4

REPORT INFORMATION
  Report Type: Spontaneous
  Country: GB (occurrence: GB)
  Receive Date: 20241104
  Receipt Date: 20241104
  Transmission Date: 20250114
  Serious: Yes (Hospitalization)
  Sender: STRIDES
  Company Number: GB-STRIDES ARCOLAB LIMITED-2024SP014083

PATIENT

DRUGS (1)
  1. PREDNISOLONE [Suspect]
     Active Substance: PREDNISOLONE
     Indication: Ovarian endometrioid carcinoma
     Dosage: UNK
     Route: 065

REACTIONS (2)
  - Gastritis haemorrhagic [Unknown]
  - Gastritis bacterial [Unknown]
